FAERS Safety Report 5382150-9 (Version None)
Quarter: 2007Q3

REPORT INFORMATION
  Report Type: 
  Country: None (occurrence: None)
  Receive Date: 20070709
  Receipt Date: 20070302
  Transmission Date: 20080115
  Serious: Yes (Life-Threatening, Hospitalization)
  Sender: FDA-Public Use
  Company Number: TR-ROCHE-415121

PATIENT
  Age: 58 Year
  Sex: Male
  Weight: 81 kg

DRUGS (3)
  1. PEG-INTERFERON ALFA 2A (RO 25-8310) [Suspect]
     Dosage: FORM = VIALS
     Route: 058
     Dates: start: 20040917, end: 20050820
  2. RIBAVIRIN [Suspect]
     Route: 048
     Dates: start: 20040917, end: 20050820
  3. LOSARTAN POTASSIUM [Suspect]
     Route: 065
     Dates: start: 20041108, end: 20050820

REACTIONS (1)
  - AGRANULOCYTOSIS [None]
